FAERS Safety Report 24084310 (Version 1)
Quarter: 2024Q3

REPORT INFORMATION
  Report Type: Spontaneous
  Country: FR (occurrence: FR)
  Receive Date: 20240712
  Receipt Date: 20240712
  Transmission Date: 20241017
  Serious: Yes (Death, Hospitalization, Other)
  Sender: ROCHE
  Company Number: None

PATIENT
  Age: 46 Year
  Sex: Female
  Weight: 73 kg

DRUGS (21)
  1. VALGANCICLOVIR [Suspect]
     Active Substance: VALGANCICLOVIR
     Indication: Pneumonia cytomegaloviral
     Dosage: 450 MG 3 PER WEEK
     Route: 048
     Dates: end: 20230217
  2. RITUXIMAB [Suspect]
     Active Substance: RITUXIMAB
     Indication: Cryoglobulinaemia
     Dosage: 4 COURSES
     Route: 042
     Dates: start: 20221213, end: 20221213
  3. RITUXIMAB [Suspect]
     Active Substance: RITUXIMAB
     Dosage: 4 COURSES
     Route: 042
     Dates: start: 20221219, end: 20221219
  4. RITUXIMAB [Suspect]
     Active Substance: RITUXIMAB
     Dosage: 4 COURSES
     Route: 042
     Dates: start: 20221226, end: 20221226
  5. RITUXIMAB [Suspect]
     Active Substance: RITUXIMAB
     Dosage: 4 COURSES
     Route: 042
     Dates: start: 20230103, end: 20230103
  6. SULFAMETHOXAZOLE\TRIMETHOPRIM [Suspect]
     Active Substance: SULFAMETHOXAZOLE\TRIMETHOPRIM
     Indication: Antibiotic prophylaxis
     Route: 048
     Dates: end: 20230217
  7. METHYLPREDNISOLONE [Suspect]
     Active Substance: METHYLPREDNISOLONE
     Indication: Product used for unknown indication
     Route: 065
     Dates: start: 20221203, end: 20221205
  8. PREDNISONE [Suspect]
     Active Substance: PREDNISONE
     Indication: Product used for unknown indication
     Dosage: FOR ONE WEEK, THEN GRADUAL DECREASE PLANNED UNTIL JUNE 2023
     Route: 048
     Dates: start: 20221224
  9. PREDNISONE [Suspect]
     Active Substance: PREDNISONE
     Route: 048
     Dates: start: 20221224
  10. PANTOPRAZOLE [Concomitant]
     Active Substance: PANTOPRAZOLE
     Route: 065
  11. URAPIDIL [Concomitant]
     Active Substance: URAPIDIL
     Route: 065
  12. ATENOLOL [Concomitant]
     Active Substance: ATENOLOL
     Route: 065
  13. ARANESP [Concomitant]
     Active Substance: DARBEPOETIN ALFA
     Route: 065
  14. CLONIDINE [Concomitant]
     Active Substance: CLONIDINE
     Route: 065
  15. FUROSEMIDE [Concomitant]
     Active Substance: FUROSEMIDE
     Route: 065
  16. FOLIC ACID [Concomitant]
     Active Substance: FOLIC ACID
     Route: 065
  17. AMLODIPINE BESYLATE [Concomitant]
     Active Substance: AMLODIPINE BESYLATE
     Route: 065
  18. RILMENIDINE [Concomitant]
     Active Substance: RILMENIDINE
     Route: 065
  19. GABAPENTIN [Concomitant]
     Active Substance: GABAPENTIN
     Route: 065
  20. REPAGLINIDE [Concomitant]
     Active Substance: REPAGLINIDE
     Route: 065
  21. CHOLECALCIFEROL [Concomitant]
     Active Substance: CHOLECALCIFEROL
     Route: 065

REACTIONS (6)
  - Septic shock [Fatal]
  - Febrile bone marrow aplasia [Fatal]
  - Multiple organ dysfunction syndrome [Fatal]
  - Pneumonia respiratory syncytial viral [Recovered/Resolved]
  - Superinfection [Unknown]
  - Off label use [Unknown]

NARRATIVE: CASE EVENT DATE: 20221229
